FAERS Safety Report 18464764 (Version 1)
Quarter: 2020Q4

REPORT INFORMATION
  Report Type: Spontaneous
  Country: US (occurrence: US)
  Receive Date: 20201105
  Receipt Date: 20201105
  Transmission Date: 20210114
  Serious: Yes (Other)
  Sender: FDA-Public Use
  Company Number: US-009507513-2010USA012049

PATIENT
  Age: 23235 Day
  Sex: Female

DRUGS (22)
  1. ZEJULA [Suspect]
     Active Substance: NIRAPARIB
     Dosage: 100 MILLIGRAM, QD
     Route: 048
  2. NIFEDIPINE. [Concomitant]
     Active Substance: NIFEDIPINE
  3. ZEJULA [Suspect]
     Active Substance: NIRAPARIB
     Dosage: 200 MILLIGRAM, QD
     Route: 048
     Dates: end: 20180118
  4. CYCLOBENZAPRINE HYDROCHLORIDE. [Concomitant]
     Active Substance: CYCLOBENZAPRINE HYDROCHLORIDE
  5. DOXAZOSIN [Concomitant]
     Active Substance: DOXAZOSIN MESYLATE
  6. INFLUENZA VIRUS VACCINE (UNSPECIFIED) [Suspect]
     Active Substance: INFLUENZA VIRUS VACCINE
     Indication: ANTIVIRAL PROPHYLAXIS
     Dosage: ONCE SINGLE DOSE
     Dates: start: 20181217, end: 20181217
  7. CLONIDINE. [Concomitant]
     Active Substance: CLONIDINE
  8. SENOKOT [Concomitant]
     Active Substance: SENNOSIDES
  9. METOLAZONE. [Concomitant]
     Active Substance: METOLAZONE
  10. ZOCOR [Concomitant]
     Active Substance: SIMVASTATIN
  11. TORSEMIDE. [Concomitant]
     Active Substance: TORSEMIDE
  12. ONDANSETRON [Concomitant]
     Active Substance: ONDANSETRON
  13. DOXAZOSIN [Concomitant]
     Active Substance: DOXAZOSIN MESYLATE
  14. OMEPRAZOLE. [Concomitant]
     Active Substance: OMEPRAZOLE
  15. NIFEDIPINE. [Concomitant]
     Active Substance: NIFEDIPINE
  16. ZEJULA [Suspect]
     Active Substance: NIRAPARIB
     Dosage: 200 MILLIGRAM, QD
     Route: 048
     Dates: end: 20190219
  17. PRINIVIL [Suspect]
     Active Substance: LISINOPRIL
     Route: 048
  18. CARVEDILOL. [Concomitant]
     Active Substance: CARVEDILOL
  19. MINOXIDIL. [Concomitant]
     Active Substance: MINOXIDIL
  20. ZEJULA [Suspect]
     Active Substance: NIRAPARIB
     Indication: OVARIAN CANCER
     Dosage: 100 MILLIGRAM, QD
     Route: 048
     Dates: start: 20181202, end: 20181220
  21. CALCITROL [Concomitant]
  22. OLAPARIB. [Suspect]
     Active Substance: OLAPARIB
     Dosage: UNK
     Route: 048
     Dates: start: 20190304, end: 201903

REACTIONS (20)
  - Pain in extremity [Unknown]
  - Adverse event [Unknown]
  - Weight increased [Unknown]
  - Lacrimation increased [Unknown]
  - White blood cell count decreased [Unknown]
  - Sneezing [Unknown]
  - Hypersensitivity [Recovering/Resolving]
  - Swelling face [Unknown]
  - Musculoskeletal stiffness [Unknown]
  - Vomiting [Recovered/Resolved]
  - Renal impairment [Unknown]
  - Nausea [Unknown]
  - Anxiety [Unknown]
  - Retching [Unknown]
  - Food craving [Unknown]
  - Hunger [Unknown]
  - Chest pain [Unknown]
  - Eating disorder [Unknown]
  - Dysphagia [Unknown]
  - Somnolence [Unknown]

NARRATIVE: CASE EVENT DATE: 20181202
